FAERS Safety Report 14530699 (Version 2)
Quarter: 2018Q3

REPORT INFORMATION
  Report Type: Spontaneous
  Country: GB (occurrence: GB)
  Receive Date: 20180214
  Receipt Date: 20180830
  Transmission Date: 20181010
  Serious: Yes (Other)
  Sender: FDA-Public Use
  Company Number: GB-GLAXOSMITHKLINE-GB2018GSK023999

PATIENT
  Age: 50 Year
  Sex: Male

DRUGS (2)
  1. ACYCLOVIR. [Suspect]
     Active Substance: ACYCLOVIR
     Dosage: DOSE DECREASED
     Route: 065
     Dates: end: 20170207
  2. ACYCLOVIR. [Suspect]
     Active Substance: ACYCLOVIR
     Indication: PRODUCT USED FOR UNKNOWN INDICATION
     Dosage: UNK
     Route: 065

REACTIONS (6)
  - Agitation [Unknown]
  - Crystal nephropathy [Unknown]
  - Pyrexia [Unknown]
  - Abnormal behaviour [Unknown]
  - Renal injury [Recovering/Resolving]
  - Aggression [Unknown]
